FAERS Safety Report 9501061 (Version 1)
Quarter: 2013Q1

REPORT INFORMATION
  Report Type: Spontaneous
  Country: US (occurrence: None)
  Receive Date: 20130107
  Receipt Date: 20130107
  Transmission Date: 20140127
  Serious: No
  Sender: FDA-Public Use
  Company Number: PHEH2012US018843

PATIENT
  Age: 55 Year
  Sex: Male
  Weight: 113.4 kg

DRUGS (2)
  1. GILENYA ( FTY) CAPSULE, 0.5MG [Suspect]
     Indication: MULTIPLE SCLEROSIS
     Route: 048
     Dates: start: 20120912
  2. BACLOFEN ( BACLOFEN) [Concomitant]

REACTIONS (3)
  - Nausea [None]
  - Headache [None]
  - Dizziness [None]
